FAERS Safety Report 9407874 (Version 1)
Quarter: 2013Q3

REPORT INFORMATION
  Report Type: Spontaneous
  Country: DE (occurrence: DE)
  Receive Date: 20130718
  Receipt Date: 20130718
  Transmission Date: 20140515
  Serious: Yes (Life-Threatening, Hospitalization)
  Sender: FDA-Public Use
  Company Number: DE-ELI_LILLY_AND_COMPANY-DE201305004415

PATIENT
  Age: 75 Year
  Sex: Male

DRUGS (2)
  1. EFIENT [Suspect]
     Indication: STENT PLACEMENT
     Dosage: 10 MG, UNK
     Dates: start: 201212, end: 20130513
  2. ASPIRIN (ACETYLSALICYLIC ACID) [Concomitant]
     Dosage: 100 MG, UNK

REACTIONS (4)
  - Gastrointestinal haemorrhage [Recovering/Resolving]
  - Fall [Recovering/Resolving]
  - Rib fracture [Recovering/Resolving]
  - Anaemia [Recovering/Resolving]
